FAERS Safety Report 6701904-7 (Version None)
Quarter: 2010Q2

REPORT INFORMATION
  Report Type: 
  Country: None (occurrence: None)
  Receive Date: 20100429
  Receipt Date: 20100419
  Transmission Date: 20101027
  Serious: Yes (Life-Threatening, Hospitalization)
  Sender: FDA-Public Use
  Company Number: GB-PFIZER INC-2010045553

PATIENT
  Age: 84 Year
  Sex: Female

DRUGS (4)
  1. EXEMESTANE [Suspect]
     Indication: BREAST CANCER
     Dosage: UNK
     Dates: start: 20050805
  2. TRAMADOL [Concomitant]
     Indication: POLYMYALGIA RHEUMATICA
     Dosage: 200 MG, UNK
     Route: 048
     Dates: start: 20000101
  3. FELODIPINE [Concomitant]
     Indication: HYPERTENSION
     Dosage: 10 MG, UNK
     Route: 048
     Dates: start: 20030101
  4. SIMVASTATIN [Concomitant]
     Indication: BLOOD CHOLESTEROL INCREASED
     Dosage: 40 MG, UNK
     Route: 048
     Dates: start: 20060601, end: 20100326

REACTIONS (1)
  - PULMONARY EMBOLISM [None]
